FAERS Safety Report 5255076-9 (Version None)
Quarter: 2007Q1

REPORT INFORMATION
  Report Type: 
  Country: None (occurrence: None)
  Receive Date: 20070228
  Receipt Date: 20070213
  Transmission Date: 20070707
  Serious: Yes (Other)
  Sender: FDA-Public Use
  Company Number: 2006PV024958

PATIENT
  Age: 58 Year
  Sex: Female

DRUGS (6)
  1. BYETTA [Suspect]
     Indication: DIABETES MELLITUS NON-INSULIN-DEPENDENT
     Dosage: 10 MCG; BID SC
     Route: 058
     Dates: start: 20050608, end: 20061001
  2. HUMALOG [Concomitant]
  3. LANTUS [Concomitant]
  4. DIOVAN [Concomitant]
  5. SYNTHROID [Concomitant]
  6. OMACOR [Concomitant]

REACTIONS (2)
  - DIARRHOEA [None]
  - PANCREATIC CARCINOMA [None]
